FAERS Safety Report 25311893 (Version 1)
Quarter: 2025Q2

REPORT INFORMATION
  Report Type: Spontaneous
  Country: US (occurrence: None)
  Receive Date: 20250514
  Receipt Date: 20250514
  Transmission Date: 20250717
  Serious: Yes (Hospitalization)
  Sender: FDA-CTU
  Company Number: None

PATIENT
  Age: 61 Year
  Sex: Male
  Weight: 89 kg

DRUGS (9)
  1. CYCLOPHOSPHAMIDE [Suspect]
     Active Substance: CYCLOPHOSPHAMIDE
     Dates: end: 20250207
  2. CYTARABINE [Suspect]
     Active Substance: CYTARABINE
     Dates: end: 20250205
  3. DEXAMETHASONE [Suspect]
     Active Substance: DEXAMETHASONE
     Dates: end: 20250216
  4. DOXORUBICIN HYDROCHLORIDE [Suspect]
     Active Substance: DOXORUBICIN HYDROCHLORIDE
     Dates: end: 20250208
  5. MESNA [Suspect]
     Active Substance: MESNA
     Dates: end: 20250207
  6. METHOTREXATE [Suspect]
     Active Substance: METHOTREXATE
     Dates: end: 20250213
  7. PONATINIB [Suspect]
     Active Substance: PONATINIB
     Dates: end: 20250430
  8. VINCRISTINE SULFATE [Suspect]
     Active Substance: VINCRISTINE SULFATE
     Dates: end: 20250213
  9. PEGFILGRASTIM-JMDB [Concomitant]
     Active Substance: PEGFILGRASTIM-JMDB

REACTIONS (7)
  - Back pain [None]
  - Abdominal pain [None]
  - Anaemia [None]
  - Pleural effusion [None]
  - Enterococcal sepsis [None]
  - Enterococcal infection [None]
  - Constipation [None]

NARRATIVE: CASE EVENT DATE: 20250217
